FAERS Safety Report 26012087 (Version 1)
Quarter: 2025Q4

REPORT INFORMATION
  Report Type: Other
  Country: GB (occurrence: GB)
  Receive Date: 20251107
  Receipt Date: 20251107
  Transmission Date: 20260118
  Serious: Yes (Other)
  Sender: GLENMARK
  Company Number: GB-MHRA-TPP3685192C27777531YC1761218906155

PATIENT
  Age: 70 Year
  Sex: Female
  Weight: 89 kg

DRUGS (6)
  1. ROSUVASTATIN CALCIUM [Suspect]
     Active Substance: ROSUVASTATIN CALCIUM
     Indication: Blood cholesterol increased
     Dosage: 1 DOSAGE FORM, QD (TAKE ONE TABLET EACH DAY TO HELP LOWER CHOLESTEROL)
     Route: 065
     Dates: start: 20250930
  2. EZETIMIBE [Concomitant]
     Active Substance: EZETIMIBE
     Indication: Blood cholesterol increased
     Dosage: 1 DOSAGE FORM, OD (TAKE ONE TABLET ONCE A DAY TO HELP LOWER CHOLES...)
     Route: 065
     Dates: start: 20240926
  3. ATENOLOL [Concomitant]
     Active Substance: ATENOLOL
     Indication: Ill-defined disorder
     Dosage: UNK UNK, AM  (TAKE ONE EACH MORNING)
     Route: 065
     Dates: start: 20241217
  4. ENALAPRIL [Concomitant]
     Active Substance: ENALAPRIL
     Indication: Ill-defined disorder
     Dosage: UNK, BID  (TAKE ONE TWICE DAILY)
     Route: 065
     Dates: start: 20241217
  5. ALLOPURINOL [Concomitant]
     Active Substance: ALLOPURINOL
     Indication: Gout
     Dosage: UNK (TWO A DAY TO HELP PREVENT GOUT)
     Route: 065
     Dates: start: 20250212
  6. ALLOPURINOL [Concomitant]
     Active Substance: ALLOPURINOL
     Indication: Prophylaxis

REACTIONS (2)
  - Joint swelling [Recovering/Resolving]
  - Myalgia [Recovering/Resolving]
